FAERS Safety Report 9060637 (Version 1)
Quarter: 2013Q1

REPORT INFORMATION
  Report Type: Spontaneous
  Country: ES (occurrence: ES)
  Receive Date: 20130212
  Receipt Date: 20130212
  Transmission Date: 20140127
  Serious: Yes (Disabling)
  Sender: FDA-Public Use
  Company Number: ES-B.I. PHARMACEUTICALS,INC./RIDGEFIELD-2013-ES-00052ES

PATIENT
  Age: 62 None
  Sex: Male
  Weight: 85 kg

DRUGS (6)
  1. PRADAXA [Suspect]
     Indication: ATRIAL FIBRILLATION
     Dosage: 300 MG
     Route: 048
     Dates: start: 20111223
  2. APROVEL [Concomitant]
     Indication: HYPERTENSION
     Dosage: 150 NR
     Route: 048
     Dates: start: 20050101
  3. CARVEDILOL 25 [Concomitant]
     Indication: HYPERTENSION
     Dosage: 12.5 NR
     Route: 048
     Dates: start: 20120831
  4. APOCARD [Concomitant]
     Indication: ATRIAL FIBRILLATION
     Dosage: 200 NR
     Route: 048
     Dates: start: 20120315
  5. APOCARD [Concomitant]
     Indication: CARDIOVERSION
  6. LIPITOR [Concomitant]
     Indication: HYPERCHOLESTEROLAEMIA
     Dosage: 40 NR
     Route: 048
     Dates: start: 20120831

REACTIONS (2)
  - Ischaemic stroke [Recovered/Resolved with Sequelae]
  - Drug ineffective [Recovered/Resolved with Sequelae]
